FAERS Safety Report 25937700 (Version 1)
Quarter: 2025Q4

REPORT INFORMATION
  Report Type: Spontaneous
  Country: EU (occurrence: EU)
  Receive Date: 20251018
  Receipt Date: 20251018
  Transmission Date: 20260118
  Serious: Yes (Other)
  Sender: ACCORD
  Company Number: None

PATIENT
  Age: 70 Year
  Sex: Male
  Weight: 91 kg

DRUGS (3)
  1. AMLODIPINE [Suspect]
     Active Substance: AMLODIPINE BESYLATE
     Indication: Hypertension
     Dosage: STRENGTH: 10 MG, 1X PER DAY 1 PIECE 5 MG
     Dates: start: 20250515
  2. PERINDOPRIL [Suspect]
     Active Substance: PERINDOPRIL
     Indication: Hypertension
     Dosage: STRENGTH: 4 MG 1 X PER DAY 1 PIECE
     Dates: start: 20250403, end: 20250717
  3. AMLODIPINE [Suspect]
     Active Substance: AMLODIPINE BESYLATE
     Indication: Hypertension
     Dosage: STRENGTH: 10 MG, 1X PER DAY 1 PIECE 5 MG

REACTIONS (3)
  - Tinnitus [Recovering/Resolving]
  - Deafness [Recovering/Resolving]
  - Dizziness [Recovering/Resolving]
